FAERS Safety Report 6911460-6 (Version None)
Quarter: 2010Q3

REPORT INFORMATION
  Report Type: 
  Country: None (occurrence: None)
  Receive Date: 20100806
  Receipt Date: 20100707
  Transmission Date: 20110219
  Serious: Yes (Death, Hospitalization)
  Sender: FDA-Public Use
  Company Number: RO-ELI_LILLY_AND_COMPANY-RO201008000932

PATIENT
  Sex: Male
  Weight: 80 kg

DRUGS (10)
  1. GEMCITABINE HCL [Suspect]
     Indication: NON-SMALL CELL LUNG CANCER
     Dosage: 2375 MG, 2 IN 3 WK
     Route: 042
     Dates: start: 20100519
  2. CISPLATIN [Suspect]
     Indication: NON-SMALL CELL LUNG CANCER
     Dosage: 145 MG, 1 IN 3 WK
     Route: 042
     Dates: start: 20100519
  3. AVANDAMET [Concomitant]
     Indication: DIABETES MELLITUS
     Dates: start: 20060101
  4. INDAPAMIDE [Concomitant]
     Indication: HYPERTENSION
     Dates: start: 20080901
  5. CODEINE PHOSPHATE [Concomitant]
     Indication: COUGH
     Dates: start: 20100512
  6. ETHAMSYLATE [Concomitant]
     Indication: HAEMOPTYSIS
     Dates: start: 20100512, end: 20100524
  7. CARBAZOCHROME [Concomitant]
     Indication: HAEMOPTYSIS
     Dates: start: 20100512, end: 20100521
  8. TRAMADOL HYDROCHLORIDE [Concomitant]
     Indication: CHEST PAIN
     Dates: start: 20100512
  9. METOCLOPRAMIDE [Concomitant]
     Indication: NAUSEA
     Dates: start: 20100520, end: 20100526
  10. BISACODYL [Concomitant]
     Indication: CONSTIPATION
     Dates: start: 20100602

REACTIONS (2)
  - ATRIAL FLUTTER [None]
  - MYOCARDIAL INFARCTION [None]
